FAERS Safety Report 25460951 (Version 6)
Quarter: 2025Q3

REPORT INFORMATION
  Report Type: Spontaneous
  Country: EU (occurrence: EU)
  Receive Date: 20250620
  Receipt Date: 20250902
  Transmission Date: 20251021
  Serious: Yes (Other)
  Sender: IPSEN BIOPHARMACEUTICALS, INC.
  Company Number: EU-IPSEN Group, Research and Development-2025-14026

PATIENT
  Age: 59 Year
  Sex: Female

DRUGS (1)
  1. LANREOTIDE ACETATE [Suspect]
     Active Substance: LANREOTIDE ACETATE
     Indication: Pancreatic neuroendocrine tumour
     Dates: start: 201703

REACTIONS (3)
  - Metastases to liver [Unknown]
  - Polyneuropathy [Unknown]
  - Meningioma [Unknown]

NARRATIVE: CASE EVENT DATE: 20190101
